FAERS Safety Report 5065122-3 (Version None)
Quarter: 2006Q3

REPORT INFORMATION
  Report Type: 
  Country: None (occurrence: None)
  Receive Date: 20060727
  Receipt Date: 20060727
  Transmission Date: 20061208
  Serious: No
  Sender: FDA-Public Use
  Company Number: None

PATIENT
  Age: 45 Year
  Sex: Female
  Weight: 71.6683 kg

DRUGS (1)
  1. DEPO-PROVERA [Suspect]
     Indication: DYSFUNCTIONAL UTERINE BLEEDING
     Dosage: 150 MG X 1 IM
     Route: 030
     Dates: start: 20060120

REACTIONS (2)
  - DRUG HYPERSENSITIVITY [None]
  - RASH [None]
